FAERS Safety Report 6400929-9 (Version None)
Quarter: 2009Q4

REPORT INFORMATION
  Report Type: 
  Country: None (occurrence: None)
  Receive Date: 20091009
  Receipt Date: 20090923
  Transmission Date: 20100525
  Serious: Yes (Other)
  Sender: FDA-Public Use
  Company Number: MC200900365

PATIENT

DRUGS (1)
  1. ANGIOMAX [Suspect]
     Indication: PERCUTANEOUS CORONARY INTERVENTION
     Dosage: BOLUS, INTRAVENOUS; INFUSION, INTRAVENOUS
     Route: 042

REACTIONS (7)
  - COAGULATION TIME ABNORMAL [None]
  - ISCHAEMIA [None]
  - PRODUCT RECONSTITUTION ISSUE [None]
  - REPERFUSION INJURY [None]
  - THROMBOSIS [None]
  - UNDERDOSE [None]
  - WRONG TECHNIQUE IN DRUG USAGE PROCESS [None]
